FAERS Safety Report 9259066 (Version 2)
Quarter: 2013Q2

REPORT INFORMATION
  Report Type: Spontaneous
  Country: CA (occurrence: CA)
  Receive Date: 20130426
  Receipt Date: 20130517
  Transmission Date: 20140414
  Serious: Yes (Hospitalization)
  Sender: FDA-Public Use
  Company Number: CA-ASTRAZENECA-2013SE26830

PATIENT
  Age: 56 Year
  Sex: Female
  Weight: 52 kg

DRUGS (28)
  1. ENTOCORT CAPSULES [Suspect]
     Indication: OESOPHAGEAL ULCER
     Route: 048
     Dates: start: 20130320
  2. ENTOCORT CAPSULES [Suspect]
     Indication: OESOPHAGEAL ULCER
     Dosage: 2X3 MG / DAY
     Route: 048
  3. METHADONE HYDROCHLORIDE [Suspect]
     Route: 048
  4. METHADONE HYDROCHLORIDE [Suspect]
     Dosage: 7.5 MG EVERY FOUR HRS PRN
     Route: 048
  5. BACTROBAN [Concomitant]
     Dosage: BID TO R HAND
  6. CONJUGATED ESTROGENS [Concomitant]
  7. EPIPEN [Concomitant]
     Dosage: AS DIRECTED
  8. FLOVENT HFA [Concomitant]
     Dosage: 125 2 PUFFS BID
  9. FLUOXETINE HYDROCHLORIDE [Concomitant]
     Dosage: 20 MG BID BLISTER PACK
  10. FUROSEMIDE [Concomitant]
     Dosage: 40 MG 1 OD PRN
  11. GRAVOL [Concomitant]
     Dosage: 50 MG IM Q 6 HOURS PRN
  12. K-LOR [Concomitant]
     Dosage: 10 MEQ BID
  13. LORAZEPAM [Concomitant]
     Dosage: 0.5 MG, PRN
     Route: 048
  14. LYRICA [Concomitant]
  15. CESAMET [Concomitant]
     Route: 048
  16. LOSEC [Concomitant]
     Route: 048
  17. PEDIASURE [Concomitant]
     Dosage: 1-2 CANS TID
  18. RHINARIS [Concomitant]
     Dosage: 2 PUFFS EACH NOSTRILS BID
  19. ROUGLER MAGNESIUM [Concomitant]
     Dosage: 30 CC TID
  20. SALBUTAMOL [Concomitant]
     Dosage: 2 PUFFS QID PRN
  21. TRAZODONE HYDROCHLORIDE [Concomitant]
     Dosage: 150 MG HS BLISTER PACK
  22. URSODIOL [Concomitant]
     Dosage: 250 MG TID BLISTER PACK
  23. VITAMIN D [Concomitant]
     Dosage: 400 UNITS DAILY BLISTER PACK
  24. ZOPICLONE [Concomitant]
     Dosage: 7.5 MG HS BLISTER PACK
  25. ZOPICLONE [Concomitant]
  26. CRESTOR [Concomitant]
     Route: 048
  27. ZOFRAN [Concomitant]
     Dosage: 8 MG Q6HR PRN
  28. LASIX [Concomitant]
     Dosage: 40 MG EVERY QAM PRN

REACTIONS (3)
  - Small intestinal obstruction [Unknown]
  - Abdominal pain [Recovered/Resolved]
  - Gastrointestinal stoma complication [Recovered/Resolved]
